FAERS Safety Report 13450146 (Version 1)
Quarter: 2017Q2

REPORT INFORMATION
  Report Type: Spontaneous
  Country: None (occurrence: US)
  Receive Date: 20170417
  Receipt Date: 20170417
  Transmission Date: 20170830
  Serious: No
  Sender: FDA-Public Use
  Company Number: US-BION-20160139

PATIENT
  Age: 35 Year
  Sex: Female
  Weight: 83.91 kg

DRUGS (1)
  1. EQUATE NAPROXEN SODIUM [Suspect]
     Active Substance: NAPROXEN SODIUM
     Indication: ARTHRITIS
     Route: 048

REACTIONS (4)
  - Rash [None]
  - Nausea [Recovered/Resolved]
  - Drug ineffective [Unknown]
  - Rash [Recovered/Resolved]

NARRATIVE: CASE EVENT DATE: 20160330
